FAERS Safety Report 8999023 (Version 3)
Quarter: 2013Q2

REPORT INFORMATION
  Report Type: Spontaneous
  Country: JP (occurrence: JP)
  Receive Date: 20130103
  Receipt Date: 20130419
  Transmission Date: 20140414
  Serious: Yes (Other)
  Sender: FDA-Public Use
  Company Number: JP-SANOFI-AVENTIS-2012SA095766

PATIENT
  Age: 48 Year
  Sex: Female
  Weight: 47 kg

DRUGS (14)
  1. ELPLAT [Suspect]
     Indication: COLON CANCER
     Route: 041
     Dates: start: 20120927, end: 20120927
  2. ELPLAT [Suspect]
     Indication: COLON CANCER
     Route: 041
     Dates: start: 20121022, end: 20121022
  3. ELPLAT [Suspect]
     Indication: COLON CANCER
     Route: 041
     Dates: start: 20121112, end: 20121112
  4. ELPLAT [Suspect]
     Indication: COLON CANCER
     Route: 041
     Dates: start: 20121203, end: 20121203
  5. XELODA [Concomitant]
     Indication: COLON CANCER
     Route: 048
     Dates: start: 20120927, end: 20121010
  6. XELODA [Concomitant]
     Indication: COLON CANCER
     Route: 048
     Dates: start: 20121022, end: 20121104
  7. XELODA [Concomitant]
     Indication: COLON CANCER
     Route: 048
     Dates: start: 20121112, end: 20121125
  8. ANTIEMETICS AND ANTINAUSEANTS [Concomitant]
     Dates: start: 20120927, end: 20121203
  9. ALOXI [Concomitant]
     Dates: start: 20120927, end: 20121203
  10. DEXAMETHASONE SODIUM PHOSPHATE [Concomitant]
     Dates: start: 20120927, end: 20121203
  11. DEXAMETHASONE SODIUM PHOSPHATE [Concomitant]
  12. PARACETAMOL/TRAMADOL HYDROCHLORIDE [Concomitant]
     Dates: start: 20121226
  13. LYRICA [Concomitant]
     Dates: start: 20121207
  14. ANTEBATE [Concomitant]
     Dates: start: 20121119

REACTIONS (5)
  - Neuropathy peripheral [Not Recovered/Not Resolved]
  - Decreased appetite [Unknown]
  - Drug eruption [Unknown]
  - Nausea [Unknown]
  - Dysgeusia [Unknown]
